FAERS Safety Report 7562432-2 (Version None)
Quarter: 2011Q2

REPORT INFORMATION
  Report Type: 
  Country: None (occurrence: None)
  Receive Date: 20110622
  Receipt Date: 20110616
  Transmission Date: 20111010
  Serious: Yes (Other)
  Sender: FDA-Public Use
  Company Number: AU-ASTELLAS-2011EU003374

PATIENT
  Sex: Female
  Weight: 75 kg

DRUGS (4)
  1. VESICARE [Suspect]
     Indication: HYPERTONIC BLADDER
     Dosage: 5 MG, UNKNOWN/D
     Route: 048
     Dates: start: 20090801, end: 20091001
  2. AVAPRO HCT [Concomitant]
     Indication: HYPERTENSION
     Dosage: UNK
     Route: 048
     Dates: start: 19900101
  3. CARTIA XT [Concomitant]
     Indication: PROPHYLAXIS
     Dosage: 100 MG, UID/QD
     Route: 048
     Dates: start: 19900101
  4. VESICARE [Suspect]
     Indication: URINARY INCONTINENCE

REACTIONS (1)
  - RENAL IMPAIRMENT [None]
